FAERS Safety Report 7104563-7 (Version None)
Quarter: 2010Q4

REPORT INFORMATION
  Report Type: 
  Country: None (occurrence: None)
  Receive Date: 20101116
  Receipt Date: 20101021
  Transmission Date: 20110411
  Serious: No
  Sender: FDA-Public Use
  Company Number: US-BIOGENIDEC-2010BI036093

PATIENT
  Age: 73 Year
  Sex: Female

DRUGS (2)
  1. AVONEX [Suspect]
     Indication: MULTIPLE SCLEROSIS
     Route: 030
     Dates: start: 20030317, end: 20050914
  2. AVONEX [Suspect]
     Route: 030
     Dates: start: 20060111

REACTIONS (2)
  - HERPES SIMPLEX [None]
  - HERPES ZOSTER [None]
